FAERS Safety Report 10313845 (Version 2)
Quarter: 2014Q3

REPORT INFORMATION
  Report Type: Spontaneous
  Country: US (occurrence: None)
  Receive Date: 20140716
  Receipt Date: 20140729
  Transmission Date: 20150326
  Serious: Yes (Other)
  Sender: FDA-Public Use
  Company Number: US-H14001-14-00180

PATIENT
  Age: 80 Year
  Sex: Female

DRUGS (4)
  1. AMOXICILLIN CLAVULANIC ACID (SPEKTRAMOX) (UNKNOWN) (CLAVULANATE POTASSIUM, AMOXICILLIN TRIHYDRATE) [Concomitant]
  2. METRONIDAZOLE. [Suspect]
     Active Substance: METRONIDAZOLE
     Indication: BRAIN ABSCESS
     Route: 042
     Dates: end: 2011
  3. CEFTRIAXONE. [Suspect]
     Active Substance: CEFTRIAXONE
     Indication: BRAIN ABSCESS
     Route: 042
     Dates: end: 2011
  4. TRIMETHOPRIM-SULFAMETHOXAZOLE (BACTRIM) (UNKNOWN) (SULFAMETHOXAZOLE, TRIMETHOPRIM) [Concomitant]

REACTIONS (9)
  - White blood cell count decreased [None]
  - Neutropenia [None]
  - Fatigue [None]
  - Cough [None]
  - Platelet count increased [None]
  - Neuropathy peripheral [None]
  - Diarrhoea [None]
  - Confusional state [None]
  - Weight decreased [None]

NARRATIVE: CASE EVENT DATE: 2011
